FAERS Safety Report 20657502 (Version 2)
Quarter: 2022Q2

REPORT INFORMATION
  Report Type: Spontaneous
  Country: JP (occurrence: JP)
  Receive Date: 20220331
  Receipt Date: 20220412
  Transmission Date: 20220721
  Serious: Yes (Other)
  Sender: FDA-Public Use
  Company Number: JP-NOVARTISPH-NVSC2022JP072287

PATIENT
  Age: 88 Year
  Sex: Female

DRUGS (1)
  1. RIVASTIGMINE [Suspect]
     Active Substance: RIVASTIGMINE
     Indication: Dementia Alzheimer^s type
     Dosage: TAPE (INCLUDING POULTICE)
     Route: 062

REACTIONS (3)
  - Parkinson^s disease [Unknown]
  - Muscle rigidity [Unknown]
  - Tremor [Unknown]
